FAERS Safety Report 4940783-5 (Version None)
Quarter: 2006Q1

REPORT INFORMATION
  Report Type: 
  Country: None (occurrence: None)
  Receive Date: 20060307
  Receipt Date: 20060301
  Transmission Date: 20060701
  Serious: Yes (Death)
  Sender: FDA-Public Use
  Company Number: US-2006-004344

PATIENT
  Sex: Male

DRUGS (1)
  1. CAMPATH [Suspect]
     Indication: NON-HODGKIN'S LYMPHOMA REFRACTORY
     Dates: start: 20060201, end: 20060228

REACTIONS (3)
  - BURNING SENSATION [None]
  - EYE IRRITATION [None]
  - INFUSION RELATED REACTION [None]
